FAERS Safety Report 9571538 (Version 1)
Quarter: 2013Q3

REPORT INFORMATION
  Report Type: Spontaneous
  Country: US (occurrence: None)
  Receive Date: 20130930
  Receipt Date: 20130930
  Transmission Date: 20140515
  Serious: Yes (Death)
  Sender: FDA-Public Use
  Company Number: None

PATIENT
  Age: 55 Year
  Sex: Male
  Weight: 49.6 kg

DRUGS (6)
  1. 5-FLUOROURACIL [Suspect]
     Dates: start: 20110829
  2. CISPLATIN [Suspect]
     Dates: start: 20110829
  3. GLYCOTHYMOL MOUTHWASH [Concomitant]
  4. MORPHINE SYRUP [Concomitant]
  5. OXAZEPAM [Concomitant]
  6. PARACRETAMOL [Concomitant]

REACTIONS (2)
  - Pneumonia [None]
  - Renal impairment [None]
